FAERS Safety Report 4609537-3 (Version None)
Quarter: 2005Q1

REPORT INFORMATION
  Report Type: 
  Country: None (occurrence: None)
  Receive Date: 20050309
  Receipt Date: 20050221
  Transmission Date: 20050727
  Serious: Yes (Hospitalization)
  Sender: FDA-Public Use
  Company Number: 601648

PATIENT
  Age: 10 Month
  Sex: Male
  Weight: 11 kg

DRUGS (3)
  1. ADVATE (ANTIHEMOPHILIC FACTOR (RECOMBINANT), PLASMA/ALBUMIN FREE METHO [Suspect]
     Indication: FACTOR VIII DEFICIENCY
     Dosage: 500 IU; Q2D;
     Dates: start: 20040929, end: 20050101
  2. ADVATE (ANTIHEMOPHILIC FACTOR (RECOMBINANT), PLASMA/ALBUMIN FREE METHO [Suspect]
  3. FACTOR VII [Concomitant]

REACTIONS (3)
  - ACCIDENT [None]
  - ANTIBODY TEST POSITIVE [None]
  - HAEMORRHAGE [None]
